FAERS Safety Report 15112403 (Version 1)
Quarter: 2018Q3

REPORT INFORMATION
  Report Type: Spontaneous
  Country: JP (occurrence: JP)
  Receive Date: 20180705
  Receipt Date: 20180705
  Transmission Date: 20181010
  Serious: Yes (Other)
  Sender: FDA-Public Use
  Company Number: JP-BAYER-2018-122220

PATIENT
  Age: 69 Year
  Sex: Male

DRUGS (1)
  1. STIVARGA [Suspect]
     Active Substance: REGORAFENIB
     Indication: RECTAL CANCER RECURRENT
     Dosage: DAILY DOSE 80 MG
     Route: 048
     Dates: start: 2015

REACTIONS (1)
  - Renal impairment [None]

NARRATIVE: CASE EVENT DATE: 201702
